FAERS Safety Report 5710047-0 (Version None)
Quarter: 2008Q2

REPORT INFORMATION
  Report Type: 
  Country: None (occurrence: None)
  Receive Date: 20080418
  Receipt Date: 20070928
  Transmission Date: 20081010
  Serious: No
  Sender: FDA-Public Use
  Company Number: US-ASTRAZENECA-2007UW20908

PATIENT
  Age: 32 Year
  Sex: Female
  Weight: 73.5 kg

DRUGS (5)
  1. TOPROL-XL [Suspect]
     Indication: WOLFF-PARKINSON-WHITE SYNDROME
     Route: 048
  2. TOPROL-XL [Suspect]
     Route: 048
     Dates: start: 20060825
  3. GLUCOPHAGE [Concomitant]
  4. CALCIUM [Concomitant]
  5. VITAMIN CAP [Concomitant]

REACTIONS (1)
  - WEIGHT INCREASED [None]
